FAERS Safety Report 23978548 (Version 1)
Quarter: 2024Q2

REPORT INFORMATION
  Report Type: Spontaneous
  Country: US (occurrence: US)
  Receive Date: 20240614
  Receipt Date: 20240614
  Transmission Date: 20240716
  Serious: No
  Sender: FDA-Public Use
  Company Number: US-BAUSCHBL-2024BNL028274

PATIENT
  Age: 81 Year
  Sex: Male

DRUGS (3)
  1. XIIDRA [Suspect]
     Active Substance: LIFITEGRAST
     Indication: Dry eye
     Dosage: FOR 3 TO 4 MONTHS, SOME TIME PRIOR TO INITIATING ?MIEBO
     Route: 047
  2. MIEBO [Suspect]
     Active Substance: PERFLUOROHEXYLOCTANE
     Indication: Dry eye
     Dosage: 4 MONTHS AGO, PRESCRIBED AS 1 DROP IN EACH EYE 4 TIMES A DAY, ONLY ENDS UP USING MIEBO 3 TIMES A DAY
     Route: 047
     Dates: start: 202402
  3. MIEBO [Suspect]
     Active Substance: PERFLUOROHEXYLOCTANE
     Dosage: SOMETIMES ONLY TWICE IF THE TIMING IS NOT RIGHT
     Route: 047
     Dates: start: 202402

REACTIONS (5)
  - Drug ineffective [Unknown]
  - Product delivery mechanism issue [Unknown]
  - Wrong dose [Unknown]
  - Intentional product use issue [Unknown]
  - Product use issue [Unknown]

NARRATIVE: CASE EVENT DATE: 20240101
